FAERS Safety Report 6738490-1 (Version None)
Quarter: 2010Q2

REPORT INFORMATION
  Report Type: 
  Country: None (occurrence: None)
  Receive Date: 20100524
  Receipt Date: 20100511
  Transmission Date: 20101027
  Serious: Yes (Hospitalization, Other)
  Sender: FDA-Public Use
  Company Number: PHHY2010BR30441

PATIENT
  Age: 74 Year
  Sex: Female
  Weight: 50 kg

DRUGS (6)
  1. DIOVAN HCT [Suspect]
     Indication: HYPERTENSION
     Dosage: 1 TABLET DAILY
     Route: 048
  2. DIOVAN HCT [Suspect]
     Dosage: 2 TABLET DAILY
     Route: 048
  3. ALENDRONATE SODIUM [Concomitant]
     Indication: BONE DISORDER
     Dosage: 1 DF, QW
     Route: 048
  4. CALCIUM CARBONATE [Concomitant]
     Indication: BONE DISORDER
     Dosage: 1 TABLET ON FASTING
     Route: 048
  5. GLIBENCLAMIDE [Concomitant]
     Indication: DIABETES MELLITUS
     Dosage: 1 TABLET IN THE MORNING
     Route: 048
  6. GLIMEPIRIDE [Concomitant]
     Indication: DIABETES MELLITUS
     Dosage: 1 TABLET AT NIGHT
     Route: 048

REACTIONS (7)
  - BLOOD PRESSURE INCREASED [None]
  - GASTRECTOMY [None]
  - GASTRIC CANCER [None]
  - HYPERGLYCAEMIA [None]
  - LUNG NEOPLASM MALIGNANT [None]
  - OVARIAN CANCER [None]
  - PAIN [None]
